FAERS Safety Report 20063519 (Version 2)
Quarter: 2021Q4

REPORT INFORMATION
  Report Type: Spontaneous
  Country: ES (occurrence: ES)
  Receive Date: 20211112
  Receipt Date: 20211123
  Transmission Date: 20220303
  Serious: Yes (Congenital Anomaly)
  Sender: FDA-Public Use
  Company Number: ES-ASTELLAS-2021US039678

PATIENT
  Age: 74 Year
  Sex: Male

DRUGS (2)
  1. TAMSULOSIN [Suspect]
     Active Substance: TAMSULOSIN
     Indication: Product used for unknown indication
     Dosage: .4 MILLIGRAM DAILY; THERAPY START DATE: ASKU
     Route: 065
     Dates: end: 20211018
  2. TAMSULOSIN [Suspect]
     Active Substance: TAMSULOSIN
     Dosage: .4 MILLIGRAM DAILY;
     Route: 065
     Dates: start: 202110

REACTIONS (5)
  - Phimosis [Recovered/Resolved]
  - Balanoposthitis [Recovered/Resolved]
  - Product dose omission in error [Recovered/Resolved]
  - Condition aggravated [Recovered/Resolved]
  - Penile erythema [Recovered/Resolved]
